FAERS Safety Report 6370741-8 (Version None)
Quarter: 2009Q3

REPORT INFORMATION
  Report Type: 
  Country: None (occurrence: None)
  Receive Date: 20090923
  Receipt Date: 20070605
  Transmission Date: 20100115
  Serious: Yes (Other)
  Sender: FDA-Public Use
  Company Number: US-ASTRAZENECA-2006UW25478

PATIENT
  Age: 437 Month
  Sex: Male
  Weight: 124.7 kg

DRUGS (9)
  1. SEROQUEL [Suspect]
     Indication: POST-TRAUMATIC STRESS DISORDER
     Dosage: 25 TO 500 MG
     Route: 048
     Dates: start: 20030912, end: 20040912
  2. SEROQUEL [Suspect]
     Indication: DEPRESSION
     Dosage: 25 TO 500 MG
     Route: 048
     Dates: start: 20030912, end: 20040912
  3. SEROQUEL [Suspect]
     Indication: HALLUCINATION
     Dosage: 25 TO 500 MG
     Route: 048
     Dates: start: 20030912, end: 20040912
  4. SEROQUEL [Suspect]
     Indication: SLEEP DISORDER
     Dosage: 25 TO 500 MG
     Route: 048
     Dates: start: 20030912, end: 20040912
  5. GEODON [Concomitant]
     Dates: start: 20060901
  6. RISPERDAL [Concomitant]
  7. BUPROPION HCL [Concomitant]
     Indication: AFFECTIVE DISORDER
     Dates: start: 20030912, end: 20040912
  8. BUPROPION HCL [Concomitant]
     Indication: ASTHENIA
     Dates: start: 20030912, end: 20040912
  9. ETODOLAC [Concomitant]
     Indication: PAIN
     Route: 048
     Dates: start: 20040930, end: 20041003

REACTIONS (3)
  - DIABETES MELLITUS INADEQUATE CONTROL [None]
  - METABOLIC SYNDROME [None]
  - TYPE 2 DIABETES MELLITUS [None]
